FAERS Safety Report 18654018 (Version 2)
Quarter: 2021Q3

REPORT INFORMATION
  Report Type: Spontaneous
  Country: US (occurrence: US)
  Receive Date: 20201223
  Receipt Date: 20210728
  Transmission Date: 20211014
  Serious: Yes (Other)
  Sender: FDA-Public Use
  Company Number: NVSC2020US337085

PATIENT

DRUGS (3)
  1. ETOPOSIDE. [Suspect]
     Active Substance: ETOPOSIDE
     Indication: DIFFUSE LARGE B-CELL LYMPHOMA REFRACTORY
     Dosage: 10 MG/KG, QD FOR 4 DAYS OVER 24 HOURS
     Route: 042
  2. ARZERRA [Suspect]
     Active Substance: OFATUMUMAB
     Indication: DIFFUSE LARGE B-CELL LYMPHOMA REFRACTORY
     Dosage: 1000 MG ON DAYS 0, 7, 14, AND 21
     Route: 042
  3. CYTARABINE. [Suspect]
     Active Substance: CYTARABINE
     Indication: DIFFUSE LARGE B-CELL LYMPHOMA REFRACTORY
     Dosage: 2000 MG/M2, BID OVER 2 HOURS FOR 4 DAYS
     Route: 065

REACTIONS (3)
  - Disease progression [Unknown]
  - Product use in unapproved indication [Unknown]
  - Diffuse large B-cell lymphoma refractory [Unknown]
